FAERS Safety Report 20476126 (Version 2)
Quarter: 2022Q1

REPORT INFORMATION
  Report Type: Spontaneous
  Country: CN (occurrence: CN)
  Receive Date: 20220215
  Receipt Date: 20220302
  Transmission Date: 20220424
  Serious: Yes (Hospitalization, Other)
  Sender: FDA-Public Use
  Company Number: CN-GLAXOSMITHKLINE-CNCH2022APC005627

PATIENT
  Age: 3 Year
  Sex: Male

DRUGS (8)
  1. IBUPROFEN [Suspect]
     Active Substance: IBUPROFEN
     Indication: Pyrexia
     Dosage: 4 ML, 4 TO 5 TIMES A DAY
     Route: 048
     Dates: start: 20190504
  2. MEZLOCILLIN SODIUM AND SULBACTAM SODIUM [Concomitant]
     Indication: Pyrexia
     Dosage: UNK
     Route: 042
     Dates: start: 20190505
  3. MEZLOCILLIN SODIUM AND SULBACTAM SODIUM [Concomitant]
     Dosage: 0.78 G, TID
     Route: 042
     Dates: start: 20190505
  4. CEFOTAXIME SODIUM [Concomitant]
     Active Substance: CEFOTAXIME SODIUM
     Indication: Anti-infective therapy
     Dosage: 0.5 G, TID
     Dates: start: 20190512
  5. AZITHROMYCIN [Concomitant]
     Active Substance: AZITHROMYCIN
     Indication: Anti-infective therapy
     Dosage: 0.15 G, QD
     Route: 048
     Dates: start: 20190514
  6. COMPOUND PHOLCODINE ORAL SOLUTION [Concomitant]
     Indication: Antitussive therapy
     Dosage: UNK
     Route: 048
     Dates: start: 20190514
  7. COMPOUND PHOLCODINE ORAL SOLUTION [Concomitant]
     Indication: Symptomatic treatment
  8. NAPROXEN [Concomitant]
     Active Substance: NAPROXEN
     Indication: Product used for unknown indication
     Dosage: UNK

REACTIONS (3)
  - Drug reaction with eosinophilia and systemic symptoms [Recovering/Resolving]
  - Rash erythematous [Recovering/Resolving]
  - Rash pruritic [Recovering/Resolving]

NARRATIVE: CASE EVENT DATE: 20190507
